FAERS Safety Report 10393548 (Version 2)
Quarter: 2014Q1

REPORT INFORMATION
  Report Type: Spontaneous
  Country: US (occurrence: None)
  Receive Date: 20120824
  Receipt Date: 20130904
  Transmission Date: 20141002
  Serious: Yes (Hospitalization)
  Sender: FDA-Public Use
  Company Number: A-US2011-49837

PATIENT
  Age: 33 Year
  Sex: Female

DRUGS (2)
  1. VELETRI [Suspect]
     Indication: PULMONARY ARTERIAL HYPERTENSION
     Dosage: 31 NG/KG, PER MIN, INTRAVENOUS
     Route: 042
     Dates: start: 20101112
  2. ADCIRCA (TADALAFIL) [Concomitant]

REACTIONS (7)
  - Haemoptysis [None]
  - Chest discomfort [None]
  - Swelling face [None]
  - Orthopnoea [None]
  - Flushing [None]
  - Nausea [None]
  - Headache [None]
